FAERS Safety Report 22143199 (Version 1)
Quarter: 2023Q1

REPORT INFORMATION
  Report Type: Spontaneous
  Country: PL (occurrence: PL)
  Receive Date: 20230327
  Receipt Date: 20230327
  Transmission Date: 20230417
  Serious: Yes (Hospitalization, Other)
  Sender: FDA-Public Use
  Company Number: PL-002147023-NVSC2023PL062748

PATIENT
  Age: 49 Year
  Sex: Male

DRUGS (25)
  1. ROSUVASTATIN [Suspect]
     Active Substance: ROSUVASTATIN
     Indication: Hypercholesterolaemia
     Dosage: 10 MG, QD (1X1 (0-0-1)
     Route: 065
     Dates: start: 202012
  2. ROSUVASTATIN [Suspect]
     Active Substance: ROSUVASTATIN
     Dosage: 50 MG (0-0-1)
     Route: 065
     Dates: start: 202104
  3. ROSUVASTATIN [Suspect]
     Active Substance: ROSUVASTATIN
     Dosage: UNK, QD (0-0-1)
     Route: 065
     Dates: start: 20220317
  4. BISOPROLOL [Suspect]
     Active Substance: BISOPROLOL
     Indication: Product used for unknown indication
     Dosage: 1.25 MG, QD
     Route: 065
     Dates: start: 202012
  5. BISOPROLOL [Suspect]
     Active Substance: BISOPROLOL
     Dosage: 1.25 MG, QD (1-0-0)
     Route: 065
     Dates: start: 202104
  6. BISOPROLOL [Suspect]
     Active Substance: BISOPROLOL
     Dosage: 1.25 MG, QD (1-0-0)
     Route: 065
     Dates: start: 20220317
  7. TORSEMIDE [Suspect]
     Active Substance: TORSEMIDE
     Indication: Product used for unknown indication
     Dosage: 20 MG, QD (0-1-0)
     Route: 065
     Dates: start: 202012
  8. TORSEMIDE [Suspect]
     Active Substance: TORSEMIDE
     Dosage: 5 MG, QD (1-0-0)
     Route: 065
     Dates: start: 202104
  9. TORSEMIDE [Suspect]
     Active Substance: TORSEMIDE
     Dosage: 10 MG, QD (1-0-0)
     Route: 065
     Dates: start: 20220317
  10. PANTOPRAZOLE [Suspect]
     Active Substance: PANTOPRAZOLE
     Indication: Product used for unknown indication
     Dosage: 20 MG, QD (1-0-0)
     Route: 065
     Dates: start: 202012
  11. SACUBITRIL\VALSARTAN [Suspect]
     Active Substance: SACUBITRIL\VALSARTAN
     Indication: Product used for unknown indication
     Dosage: UNK BID (49/51 MG)
     Route: 065
     Dates: start: 202104
  12. SACUBITRIL\VALSARTAN [Suspect]
     Active Substance: SACUBITRIL\VALSARTAN
     Dosage: UNK BID (97/103 MG)
     Route: 065
     Dates: start: 20210930
  13. SACUBITRIL\VALSARTAN [Suspect]
     Active Substance: SACUBITRIL\VALSARTAN
     Dosage: UNK BID (97/103 MG)
     Route: 065
     Dates: start: 20220317
  14. DASATINIB [Suspect]
     Active Substance: DASATINIB
     Indication: Chronic myeloid leukaemia
     Dosage: 50 MG, QD (1-0-0)
     Route: 065
     Dates: start: 2017
  15. DASATINIB [Suspect]
     Active Substance: DASATINIB
     Dosage: 50 MG, QD (1-0-0)
     Route: 065
     Dates: start: 20220317
  16. PERINDOPRIL [Suspect]
     Active Substance: PERINDOPRIL
     Indication: Product used for unknown indication
     Dosage: 5 MG (0-0-1/2)
     Route: 065
     Dates: start: 202012
  17. EPLERENONE [Suspect]
     Active Substance: EPLERENONE
     Indication: Product used for unknown indication
     Dosage: 25 MG, QD (0-1-0)
     Route: 065
  18. EPLERENONE [Suspect]
     Active Substance: EPLERENONE
     Dosage: 50 MG, QD (0-1-0)
     Route: 065
  19. FUROSEMIDE [Suspect]
     Active Substance: FUROSEMIDE
     Indication: Product used for unknown indication
     Dosage: 40 MG, QD
     Route: 065
     Dates: start: 202012
  20. FUROSEMIDE [Suspect]
     Active Substance: FUROSEMIDE
     Dosage: 40 MG, PRN
     Route: 065
     Dates: start: 202104
  21. POTASSIUM CHLORIDE [Suspect]
     Active Substance: POTASSIUM CHLORIDE
     Indication: Product used for unknown indication
     Dosage: UNK, TID
     Route: 065
     Dates: start: 202012
  22. POTASSIUM CHLORIDE [Suspect]
     Active Substance: POTASSIUM CHLORIDE
     Dosage: UNK, BID
     Route: 065
     Dates: start: 202104
  23. POTASSIUM CHLORIDE [Suspect]
     Active Substance: POTASSIUM CHLORIDE
     Dosage: UNK, QD (1-0-0)
     Route: 065
     Dates: start: 20220317
  24. DAPAGLIFLOZIN [Suspect]
     Active Substance: DAPAGLIFLOZIN
     Indication: Product used for unknown indication
     Dosage: 10 MG, QD
     Route: 065
  25. DAPAGLIFLOZIN [Suspect]
     Active Substance: DAPAGLIFLOZIN
     Dosage: 10 MG, QD (1-0-0)
     Route: 065
     Dates: start: 20220317

REACTIONS (22)
  - Mitral valve incompetence [Unknown]
  - Tachypnoea [Unknown]
  - Oedema peripheral [Unknown]
  - Exercise tolerance decreased [Unknown]
  - Atrial enlargement [Unknown]
  - Rales [Unknown]
  - Dyspnoea [Unknown]
  - Cough [Unknown]
  - Fatigue [Unknown]
  - Cardiomyopathy [Unknown]
  - Ventricular tachycardia [Unknown]
  - Ventricular hypokinesia [Unknown]
  - Tricuspid valve incompetence [Unknown]
  - Congestive cardiomyopathy [Unknown]
  - Ejection fraction decreased [Unknown]
  - Ventricular enlargement [Unknown]
  - Ill-defined disorder [Unknown]
  - Ventricular extrasystoles [Unknown]
  - Aortic valve sclerosis [Unknown]
  - Dyspnoea exertional [Unknown]
  - Left ventricular dysfunction [Unknown]
  - Right ventricular dysfunction [Unknown]

NARRATIVE: CASE EVENT DATE: 20201201
